FAERS Safety Report 9096234 (Version 1)
Quarter: 2013Q1

REPORT INFORMATION
  Report Type: Spontaneous
  Country: US (occurrence: US)
  Receive Date: 20130207
  Receipt Date: 20130207
  Transmission Date: 20140127
  Serious: Yes (Death)
  Sender: FDA-Public Use
  Company Number: US-GILEAD-2013-0069398

PATIENT
  Age: 82 Year
  Sex: Female

DRUGS (3)
  1. LETAIRIS [Suspect]
     Indication: PULMONARY ARTERIAL HYPERTENSION
     Dosage: 5 MG, UNK
     Dates: start: 20121211
  2. LETAIRIS [Suspect]
     Dosage: 5 MG, QD
     Dates: start: 20121212
  3. TRACLEER                           /01587701/ [Concomitant]

REACTIONS (1)
  - Death [Fatal]
